FAERS Safety Report 4301629-1 (Version None)
Quarter: 2004Q1

REPORT INFORMATION
  Report Type: 
  Country: None (occurrence: None)
  Receive Date: 20040218
  Receipt Date: 20031121
  Transmission Date: 20041129
  Serious: Yes (Other)
  Sender: FDA-Public Use
  Company Number: 2003-11-1714

PATIENT
  Age: 41 Year
  Sex: Male

DRUGS (2)
  1. PEG-INTRON [Suspect]
     Indication: HEPATITIS C
     Dosage: SUBCUTANEOUS
     Route: 058
  2. REBETOL [Suspect]
     Indication: HEPATITIS C
     Dosage: ORAL
     Route: 048

REACTIONS (8)
  - AGGRESSION [None]
  - BACK PAIN [None]
  - CHEST PAIN [None]
  - DEPENDENCE [None]
  - DEPRESSION [None]
  - DYSPNOEA [None]
  - IRRITABILITY [None]
  - SUICIDAL IDEATION [None]
